FAERS Safety Report 20774785 (Version 1)
Quarter: 2022Q2

REPORT INFORMATION
  Report Type: Spontaneous
  Country: US (occurrence: US)
  Receive Date: 20220502
  Receipt Date: 20220502
  Transmission Date: 20220721
  Serious: No
  Sender: FDA-Public Use
  Company Number: US-ABBVIE-21K-163-3909881-00

PATIENT
  Sex: Female
  Weight: 77.180 kg

DRUGS (16)
  1. CREON [Suspect]
     Active Substance: PANCRELIPASE AMYLASE\PANCRELIPASE LIPASE\PANCRELIPASE PROTEASE
     Indication: Pancreatic failure
     Route: 048
     Dates: start: 20210310
  2. CARVEDILOL [Concomitant]
     Active Substance: CARVEDILOL
     Indication: Hypertension
  3. SYMBICORT [Concomitant]
     Active Substance: BUDESONIDE\FORMOTEROL FUMARATE DIHYDRATE
     Indication: Chronic obstructive pulmonary disease
  4. SYMBICORT [Concomitant]
     Active Substance: BUDESONIDE\FORMOTEROL FUMARATE DIHYDRATE
     Indication: Asthma
  5. HYDROCHLOROTHIAZIDE [Concomitant]
     Active Substance: HYDROCHLOROTHIAZIDE
     Indication: Hypertension
  6. AMLODIPINE [Concomitant]
     Active Substance: AMLODIPINE BESYLATE
     Indication: Hypertension
  7. BUSPIRONE [Concomitant]
     Active Substance: BUSPIRONE HYDROCHLORIDE
     Indication: Affective disorder
  8. DULOXETINE [Concomitant]
     Active Substance: DULOXETINE
     Indication: Affective disorder
  9. ALBUTEROL [Concomitant]
     Active Substance: ALBUTEROL
     Indication: Chronic obstructive pulmonary disease
  10. ALBUTEROL [Concomitant]
     Active Substance: ALBUTEROL
     Indication: Asthma
  11. DIPHENOXYLATE ATROPINE [Concomitant]
     Indication: Prophylaxis against diarrhoea
  12. HYDROXYZINE HYDROCHLORIDE [Concomitant]
     Active Substance: HYDROXYZINE HYDROCHLORIDE
     Indication: Anxiety
  13. HYDROXYZINE HYDROCHLORIDE [Concomitant]
     Active Substance: HYDROXYZINE HYDROCHLORIDE
     Indication: Pruritus
  14. TAGAMET [Concomitant]
     Active Substance: CIMETIDINE
     Indication: Antacid therapy
  15. TYLENOL [Concomitant]
     Active Substance: ACETAMINOPHEN
     Indication: Headache
  16. COVID-19 VACCINE [Concomitant]
     Indication: COVID-19 immunisation
     Dosage: PFIZER MANUFACTURER
     Dates: start: 20210122, end: 20210219

REACTIONS (5)
  - Urinary incontinence [Not Recovered/Not Resolved]
  - Dehydration [Not Recovered/Not Resolved]
  - Dry skin [Not Recovered/Not Resolved]
  - Thirst [Not Recovered/Not Resolved]
  - Coeliac disease [Unknown]

NARRATIVE: CASE EVENT DATE: 20210101
